FAERS Safety Report 11594727 (Version 2)
Quarter: 2015Q4

REPORT INFORMATION
  Report Type: Spontaneous
  Country: JP (occurrence: JP)
  Receive Date: 20151005
  Receipt Date: 20151130
  Transmission Date: 20160304
  Serious: Yes (Death, Hospitalization)
  Sender: FDA-Public Use
  Company Number: JP-SA-2015SA150046

PATIENT
  Age: 68 Year
  Sex: Male
  Weight: 86.8 kg

DRUGS (13)
  1. LEUPLIN [Concomitant]
     Active Substance: LEUPROLIDE ACETATE
     Indication: PREMEDICATION
     Dates: start: 20111122, end: 2015
  2. TAXOTERE [Suspect]
     Active Substance: DOCETAXEL
     Indication: PROSTATE CANCER
     Route: 042
     Dates: start: 20150605
  3. ODYNE [Concomitant]
     Active Substance: FLUTAMIDE
     Indication: PROSTATE CANCER
     Dates: start: 20130930
  4. XALATAN [Concomitant]
     Active Substance: LATANOPROST
  5. PROTECADIN [Concomitant]
     Active Substance: LAFUTIDINE
  6. TAMSULOSIN [Concomitant]
     Active Substance: TAMSULOSIN
  7. TAXOTERE [Suspect]
     Active Substance: DOCETAXEL
     Indication: PROSTATE CANCER
     Route: 042
     Dates: start: 20140301
  8. DIOVAN [Concomitant]
     Active Substance: VALSARTAN
  9. LIPIDIL [Concomitant]
     Active Substance: FENOFIBRATE
  10. TAXOTERE [Suspect]
     Active Substance: DOCETAXEL
     Indication: PROSTATE CANCER
     Dosage: 90 MG/BODY
     Route: 042
     Dates: start: 20150710
  11. TAXOTERE [Suspect]
     Active Substance: DOCETAXEL
     Indication: PROSTATE CANCER
     Dosage: 90 MG/BODY
     Route: 042
     Dates: start: 20150807
  12. EQUA [Concomitant]
     Active Substance: VILDAGLIPTIN
  13. AMARYL [Concomitant]
     Active Substance: GLIMEPIRIDE

REACTIONS (7)
  - Pain in extremity [Recovered/Resolved]
  - Pyrexia [Recovered/Resolved]
  - Neutrophil count decreased [Recovered/Resolved]
  - Cellulitis [Recovered/Resolved]
  - White blood cell count decreased [Recovered/Resolved]
  - Neutrophil count decreased [Unknown]
  - Erythema [Recovered/Resolved]

NARRATIVE: CASE EVENT DATE: 2015
